FAERS Safety Report 5713811-7 (Version None)
Quarter: 2008Q2

REPORT INFORMATION
  Report Type: 
  Country: None (occurrence: None)
  Receive Date: 20080421
  Receipt Date: 20080415
  Transmission Date: 20081010
  Serious: Yes (Death, Life-Threatening, Hospitalization, Other)
  Sender: FDA-Public Use
  Company Number: CLOF-1000007

PATIENT
  Age: 12 Year
  Sex: Male
  Weight: 36.4 kg

DRUGS (12)
  1. CLOLAR(CLOFARABINE) SOLUTION FOR INFUSION [Suspect]
     Indication: ACUTE LYMPHOCYTIC LEUKAEMIA
     Dosage: 36 MG, INTRAVENOUS
     Route: 042
     Dates: start: 20071206, end: 20071215
  2. CLOLAR(CLOFARABINE) SOLUTION FOR INFUSION [Suspect]
     Indication: MYELOID LEUKAEMIA
     Dosage: 36 MG, INTRAVENOUS
     Route: 042
     Dates: start: 20071206, end: 20071215
  3. CYCLOPHOSPHAMIDE [Suspect]
     Indication: ACUTE LYMPHOCYTIC LEUKAEMIA
     Dosage: 240 MG, INTRAVENOUS; 480 MG, INTRAVENOUS
     Route: 042
     Dates: start: 20071205, end: 20071206
  4. CYCLOPHOSPHAMIDE [Suspect]
     Indication: MYELOID LEUKAEMIA
     Dosage: 240 MG, INTRAVENOUS; 480 MG, INTRAVENOUS
     Route: 042
     Dates: start: 20071205, end: 20071206
  5. CYCLOPHOSPHAMIDE [Suspect]
     Indication: ACUTE LYMPHOCYTIC LEUKAEMIA
     Dosage: 240 MG, INTRAVENOUS; 480 MG, INTRAVENOUS
     Route: 042
     Dates: start: 20071207, end: 20071208
  6. CYCLOPHOSPHAMIDE [Suspect]
     Indication: MYELOID LEUKAEMIA
     Dosage: 240 MG, INTRAVENOUS; 480 MG, INTRAVENOUS
     Route: 042
     Dates: start: 20071207, end: 20071208
  7. CYCLOPHOSPHAMIDE [Suspect]
     Indication: ACUTE LYMPHOCYTIC LEUKAEMIA
     Dosage: 240 MG, INTRAVENOUS; 480 MG, INTRAVENOUS
     Route: 042
     Dates: start: 20071213, end: 20071215
  8. CYCLOPHOSPHAMIDE [Suspect]
     Indication: MYELOID LEUKAEMIA
     Dosage: 240 MG, INTRAVENOUS; 480 MG, INTRAVENOUS
     Route: 042
     Dates: start: 20071213, end: 20071215
  9. NALOXONE [Concomitant]
  10. HYDROMORPHONE HCL [Concomitant]
  11. HYDROCORTISONE (SALICYLIC ACID) [Concomitant]
  12. VANCOMYCIN HYDROCHLORIDE [Concomitant]

REACTIONS (41)
  - CARDIO-RESPIRATORY ARREST [None]
  - CARDIOMYOPATHY [None]
  - CHEST PAIN [None]
  - COAGULOPATHY [None]
  - DIALYSIS [None]
  - DISEASE COMPLICATION [None]
  - DRUG TOXICITY [None]
  - FEBRILE NEUTROPENIA [None]
  - FIBROSIS [None]
  - FUNGAL INFECTION [None]
  - GASTROINTESTINAL NECROSIS [None]
  - GINGIVAL BLEEDING [None]
  - HAEMOSIDEROSIS [None]
  - HEPATIC HAEMORRHAGE [None]
  - HYPOTENSION [None]
  - HYPOXIA [None]
  - INFECTION [None]
  - INTESTINAL HAEMORRHAGE [None]
  - MENTAL STATUS CHANGES [None]
  - MICROANGIOPATHIC HAEMOLYTIC ANAEMIA [None]
  - MUSCULOSKELETAL PAIN [None]
  - MYOSITIS [None]
  - NAUSEA [None]
  - PAIN IN EXTREMITY [None]
  - PANCREATIC NECROSIS [None]
  - PERICARDIAL EFFUSION [None]
  - PLEURAL EFFUSION [None]
  - PNEUMONIA [None]
  - PROCTALGIA [None]
  - PYREXIA [None]
  - RENAL FAILURE [None]
  - RESPIRATORY FAILURE [None]
  - SINUS TACHYCARDIA [None]
  - SPLEEN DISORDER [None]
  - TACHYCARDIA [None]
  - THROMBOTIC THROMBOCYTOPENIC PURPURA [None]
  - TRICUSPID VALVE DISEASE [None]
  - URINARY BLADDER HAEMORRHAGE [None]
  - VENOOCCLUSIVE LIVER DISEASE [None]
  - VOMITING [None]
  - WHITE BLOOD CELL DISORDER [None]
